FAERS Safety Report 9415699 (Version 1)
Quarter: 2013Q3

REPORT INFORMATION
  Report Type: Spontaneous
  Country: US (occurrence: US)
  Receive Date: 20130723
  Receipt Date: 20130723
  Transmission Date: 20140515
  Serious: Yes (Hospitalization, Other)
  Sender: FDA-Public Use
  Company Number: US-ASTRAZENECA-2013SE52555

PATIENT
  Age: 56 Year
  Sex: Female
  Weight: 72.6 kg

DRUGS (6)
  1. SEROQUEL [Suspect]
     Route: 048
  2. PROZAC [Suspect]
     Route: 065
  3. RISPERDAL [Suspect]
     Route: 065
  4. LITHIUM [Interacting]
     Route: 065
  5. CHANTIX [Interacting]
     Indication: SMOKING CESSATION THERAPY
     Route: 065
  6. EYE DROPS [Concomitant]

REACTIONS (12)
  - Diarrhoea [Unknown]
  - Poisoning [Unknown]
  - Nail discolouration [Unknown]
  - Visual impairment [Unknown]
  - Coma [Unknown]
  - Influenza [Unknown]
  - Loss of consciousness [Recovered/Resolved]
  - Cataract [Unknown]
  - Asthenia [Unknown]
  - Vomiting [Unknown]
  - Activities of daily living impaired [Unknown]
  - Drug interaction [Unknown]
